FAERS Safety Report 6427842-5 (Version None)
Quarter: 2009Q4

REPORT INFORMATION
  Report Type: 
  Country: None (occurrence: None)
  Receive Date: 20091105
  Receipt Date: 20091028
  Transmission Date: 20100525
  Serious: Yes (Hospitalization)
  Sender: FDA-Public Use
  Company Number: JP-JNJFOC-20090101164

PATIENT
  Sex: Male
  Weight: 57 kg

DRUGS (10)
  1. GOLIMUMAB [Suspect]
     Route: 058
  2. GOLIMUMAB [Suspect]
     Route: 058
  3. GOLIMUMAB [Suspect]
     Route: 058
  4. GOLIMUMAB [Suspect]
     Route: 058
  5. GOLIMUMAB [Suspect]
     Indication: RHEUMATOID ARTHRITIS
     Route: 058
  6. PREDONINE [Suspect]
     Indication: RHEUMATOID ARTHRITIS
     Route: 048
  7. LORFENAMIN [Concomitant]
     Indication: RHEUMATOID ARTHRITIS
     Route: 048
  8. CYTOTEC [Concomitant]
     Route: 048
  9. CYTOTEC [Concomitant]
     Indication: GASTRITIS PROPHYLAXIS
     Route: 048
  10. BENET [Concomitant]
     Indication: OSTEOPOROSIS PROPHYLAXIS
     Route: 048

REACTIONS (2)
  - CELLULITIS [None]
  - STAPHYLOCOCCAL INFECTION [None]
